FAERS Safety Report 6925036-8 (Version None)
Quarter: 2010Q3

REPORT INFORMATION
  Report Type: 
  Country: None (occurrence: None)
  Receive Date: 20100816
  Receipt Date: 20100809
  Transmission Date: 20110219
  Serious: Yes (Hospitalization)
  Sender: FDA-Public Use
  Company Number: US-SANOFI-AVENTIS-2010SA047489

PATIENT
  Age: 68 Year
  Sex: Female

DRUGS (2)
  1. LANTUS [Suspect]
     Indication: DIABETES MELLITUS
     Dosage: 70 UNITS WAS NOT DOSE AT TIME OF EVENT DOSE:60 UNIT(S)
     Route: 058
  2. OPTICLICK [Suspect]
     Dosage: USING OPTICLIK AT TIME OF HOSPITALIZATION NOT SOLOSTAR

REACTIONS (1)
  - RENAL DISORDER [None]
